FAERS Safety Report 6377467-5 (Version None)
Quarter: 2009Q3

REPORT INFORMATION
  Report Type: 
  Country: None (occurrence: None)
  Receive Date: 20090923
  Receipt Date: 20090923
  Transmission Date: 20100115
  Serious: Yes (Life-Threatening)
  Sender: FDA-Public Use
  Company Number: None

PATIENT
  Age: 64 Year
  Sex: Male
  Weight: 88.6 kg

DRUGS (25)
  1. WARFARIN [Suspect]
     Indication: ANTICOAGULANT THERAPY
     Dosage: 5MG, DAILY BY MOUTH
     Route: 048
     Dates: start: 20090723
  2. WARFARIN [Suspect]
     Indication: ANTICOAGULANT THERAPY
     Dosage: 5MG, DAILY BY MOUTH
     Route: 048
     Dates: start: 20090728
  3. WARFARIN [Suspect]
     Indication: ANTICOAGULANT THERAPY
     Dosage: 5MG, DAILY BY MOUTH
     Route: 048
     Dates: start: 20090729
  4. WARFARIN [Suspect]
     Indication: ANTICOAGULANT THERAPY
     Dosage: 5MG, DAILY BY MOUTH
     Route: 048
     Dates: start: 20090730
  5. WARFARIN [Suspect]
     Indication: ANTICOAGULANT THERAPY
     Dosage: 5MG, DAILY BY MOUTH
     Route: 048
     Dates: start: 20090731
  6. WARFARIN [Suspect]
     Indication: ANTICOAGULANT THERAPY
     Dosage: 5MG, DAILY BY MOUTH
     Route: 048
     Dates: start: 20090801
  7. WARFARIN [Suspect]
     Indication: ANTICOAGULANT THERAPY
     Dosage: 5MG, DAILY BY MOUTH
     Route: 048
     Dates: start: 20090802
  8. WARFARIN [Suspect]
     Indication: ANTICOAGULANT THERAPY
     Dosage: 5MG, DAILY BY MOUTH
     Route: 048
     Dates: start: 20090806
  9. WARFARIN [Suspect]
     Indication: ANTICOAGULANT THERAPY
     Dosage: 5MG, DAILY BY MOUTH
     Route: 048
     Dates: start: 20090807
  10. WARFARIN [Suspect]
     Indication: ANTICOAGULANT THERAPY
     Dosage: 5MG, DAILY BY MOUTH
     Route: 048
     Dates: start: 20090808
  11. WARFARIN [Suspect]
     Indication: ANTICOAGULANT THERAPY
     Dosage: 5MG, DAILY BY MOUTH
     Route: 048
     Dates: start: 20090809
  12. ACETAMINOPHEN [Concomitant]
  13. MAALOX WITH SIMETHICONE [Concomitant]
  14. AMIODARONE HCL [Concomitant]
  15. CLONAZEPAM [Concomitant]
  16. DIPHENHYDRAMINE HCL [Concomitant]
  17. DOCUSATE SODIUM [Concomitant]
  18. HYDROMORPHONE [Concomitant]
  19. INSULIN ASPART [Concomitant]
  20. LORAZEPAM [Concomitant]
  21. ONDANESTRON [Concomitant]
  22. PROCHLORPERAZINE [Concomitant]
  23. RANITIDINE [Concomitant]
  24. SERTRALINE HCL [Concomitant]
  25. SODIUM CHLORIDE [Concomitant]

REACTIONS (4)
  - HAEMOGLOBIN DECREASED [None]
  - HYPERHIDROSIS [None]
  - LARGE INTESTINAL HAEMORRHAGE [None]
  - PALLOR [None]
